FAERS Safety Report 18890898 (Version 1)
Quarter: 2021Q1

REPORT INFORMATION
  Report Type: Spontaneous
  Country: US (occurrence: US)
  Receive Date: 20210215
  Receipt Date: 20210215
  Transmission Date: 20210420
  Serious: Yes (Hospitalization)
  Sender: FDA-Public Use
  Company Number: US-AUROBINDO-AUR-APL-2021-004696

PATIENT
  Age: 28 Year
  Sex: Male

DRUGS (16)
  1. HYDROMORPHONE [Suspect]
     Active Substance: HYDROMORPHONE
     Dosage: UNK (REDUCED FROM 8 MG BOLUS TO A 3 MG BOLUS 1 BEFORE SUBSEQUENT TRANSITION )
     Route: 040
  2. METHADONE [Suspect]
     Active Substance: METHADONE HYDROCHLORIDE
     Indication: ABDOMINAL PAIN
     Dosage: 40 MILLIGRAM, 3 TIMES A DAY
     Route: 048
  3. KETAMINE [Concomitant]
     Active Substance: KETAMINE
     Dosage: 0.2 MILLIGRAM/KILOGRAM, EVERY HOUR
     Route: 040
  4. HYDROCODONE [Concomitant]
     Active Substance: HYDROCODONE
     Indication: PRODUCT USED FOR UNKNOWN INDICATION
     Dosage: UNK
     Route: 065
  5. HYDROMORPHONE [Suspect]
     Active Substance: HYDROMORPHONE
     Indication: PAIN
     Dosage: UNK (WHICH WAS TITRATED OVER SEVERAL WEEKS TO 50 MG/H WITH 25MG BOLUS)
     Route: 042
  6. METHADONE [Suspect]
     Active Substance: METHADONE HYDROCHLORIDE
     Dosage: 60 MILLIGRAM, 3 TIMES A DAY
     Route: 048
  7. DEXAMETHASONE. [Concomitant]
     Active Substance: DEXAMETHASONE
     Indication: PRODUCT USED FOR UNKNOWN INDICATION
     Dosage: 6 MILLIGRAM (EVERY 6 HOURS)
     Route: 042
  8. HYDROMORPHONE [Suspect]
     Active Substance: HYDROMORPHONE
     Dosage: 8 MILLIGRAM (EVERY 10 MINUTES)
     Route: 040
  9. MORPHINE [Concomitant]
     Active Substance: MORPHINE
     Indication: PRODUCT USED FOR UNKNOWN INDICATION
     Dosage: UNK
     Route: 048
  10. OXYCODONE [Concomitant]
     Active Substance: OXYCODONE
     Indication: PRODUCT USED FOR UNKNOWN INDICATION
     Dosage: UNK
     Route: 065
  11. KETAMINE [Concomitant]
     Active Substance: KETAMINE
     Dosage: 0.3 MILLIGRAM/KILOGRAM, EVERY HOUR
     Route: 040
  12. KETAMINE [Concomitant]
     Active Substance: KETAMINE
     Dosage: 0.1 MILLIGRAM/KILOGRAM, EVERY HOUR
     Route: 040
  13. METHADONE [Suspect]
     Active Substance: METHADONE HYDROCHLORIDE
     Dosage: 40 MILLIGRAM, 3 TIMES A DAY
     Route: 048
  14. HYDROMORPHONE [Suspect]
     Active Substance: HYDROMORPHONE
     Dosage: UNK (WAS TITRATED TO 100 MG/H WITH A 50MG BOLUS EVERY 15 MINUTES)
     Route: 042
  15. HYDROMORPHONE [Suspect]
     Active Substance: HYDROMORPHONE
     Dosage: 40 MILLIGRAM
     Route: 042
  16. KETAMINE [Concomitant]
     Active Substance: KETAMINE
     Indication: PAIN
     Dosage: 25 MILLIGRAM
     Route: 040

REACTIONS (2)
  - Central pain syndrome [Unknown]
  - Hyperaesthesia [Unknown]
